FAERS Safety Report 7088776-9 (Version None)
Quarter: 2010Q4

REPORT INFORMATION
  Report Type: 
  Country: None (occurrence: None)
  Receive Date: 20101108
  Receipt Date: 20101025
  Transmission Date: 20110411
  Serious: Yes (Other)
  Sender: FDA-Public Use
  Company Number: PHEH2008US02671

PATIENT
  Sex: Male
  Weight: 81.633 kg

DRUGS (71)
  1. ZOMETA [Suspect]
     Indication: PROSTATE CANCER
     Dosage: 4 MG, Q5W
     Dates: start: 20030106, end: 20060523
  2. CHEMOTHERAPEUTICS NOS [Concomitant]
     Dosage: UNK
     Dates: start: 20021001
  3. DEXAMETHASONE [Concomitant]
  4. RADIATION THERAPY [Concomitant]
     Indication: ASTHENIA
     Dosage: UNK
     Dates: start: 20020101
  5. RADIATION THERAPY [Concomitant]
     Indication: HYPOAESTHESIA
     Dosage: UNK
     Dates: start: 20090922, end: 20091103
  6. RADIATION THERAPY [Concomitant]
     Dosage: UNK
     Dates: start: 20091104, end: 20091120
  7. FLOMAX [Concomitant]
  8. LOTREL [Concomitant]
  9. ZOLADEX [Concomitant]
  10. PAXIL [Concomitant]
  11. DYAZIDE [Concomitant]
  12. EMCYT [Concomitant]
     Dosage: 140 MG CAPSULES TWICE DAILY
  13. CRESTOR [Concomitant]
     Dosage: 10 MG TABLETS DAILY
  14. LORAZEPAM [Concomitant]
     Dosage: 1 MG, 2 TABLETS AS NEEDED
  15. TRIAMTERENE AND HYDROCHLOROTHIAZID ^HARRIS^ [Concomitant]
     Dosage: 3 TIMES DILY
  16. ATIVAN [Concomitant]
     Dosage: 2 MG TABLETS, 1-2 DAILY
  17. TAXOL [Concomitant]
     Dosage: UNK
  18. XANAX [Concomitant]
     Dosage: 0.25 MG, TID
     Route: 048
  19. ACETAMINOPHEN AND HYDROCODONE BITARTRATE [Concomitant]
     Dosage: 7.5 MG, PRN
     Route: 048
     Dates: start: 20090513
  20. GOSERELIN [Concomitant]
     Dosage: UNK
  21. CIMETIDINE [Concomitant]
     Dosage: 300 MG, UNK
     Route: 048
  22. ZOFRAN [Concomitant]
     Dosage: 32 MG, QD
  23. BENADRYL ^ACHE^ [Concomitant]
     Dosage: 25 MG, QD
     Route: 048
  24. PACLITAXEL [Concomitant]
     Dosage: 150 MG, UNK
  25. PHENERGAN ^AVENTIS PHARMA^ [Concomitant]
     Dosage: 25 MG, PRN
     Route: 048
  26. OXYCONTIN [Concomitant]
     Dosage: 40 MG, PRN
     Route: 048
  27. VALIUM [Concomitant]
     Dosage: 5 MG, PRN
  28. OXYCODONE HCL [Concomitant]
     Dosage: 5 MG, PRN
     Route: 048
  29. LOMOTIL [Concomitant]
     Dosage: UNK
     Route: 048
  30. VIAGRA [Concomitant]
     Dosage: UNK
     Route: 048
  31. CEPHALEXIN [Concomitant]
     Dosage: 500 MG, UNK
     Route: 048
     Dates: start: 20050912
  32. DARVOCET-N 100 [Concomitant]
     Dosage: 100 MG, PRN
     Route: 048
     Dates: start: 20050912
  33. CEFAZOLIN [Concomitant]
  34. CHLORHEXIDINE GLUCONATE [Concomitant]
  35. EPHEDRINE SULFATE [Concomitant]
  36. ESMOLOL HCL [Concomitant]
  37. ETOMIDATE [Concomitant]
  38. FENTANYL CITRATE [Concomitant]
  39. METOCLOPRAMIDE [Concomitant]
  40. MIDAZOLAM [Concomitant]
  41. MORPHINE [Concomitant]
  42. NEOSTIGMINE [Concomitant]
  43. ONDANSETRON [Concomitant]
  44. PROPOFOL [Concomitant]
  45. SUCCINYLCHOLINE CHLORIDE [Concomitant]
  46. THROMBIN LOCAL SOLUTION [Concomitant]
  47. ESTRAMUSTINE [Concomitant]
  48. KETOROLAC TROMETHAMINE [Concomitant]
  49. MEGACE [Concomitant]
  50. CASODEX [Concomitant]
  51. CELEXA [Concomitant]
  52. PROVIGIL [Concomitant]
  53. VITAMIN D [Concomitant]
  54. TRAMADOL HYDROCHLORIDE [Concomitant]
  55. PROMETHAZINE HYDROCHLORIDE [Concomitant]
     Dosage: 25 MG
  56. KYTRIL [Concomitant]
     Dosage: 1 MG
  57. PEPCID [Concomitant]
     Dosage: UNK
  58. LEVAQUIN [Concomitant]
     Dosage: UNK
  59. ANZEMET [Concomitant]
     Dosage: UNK
  60. LORCET-HD [Concomitant]
     Dosage: UNK
  61. IBUPROFEN [Concomitant]
     Indication: PAIN
  62. NITROGEN MUSTARD [Concomitant]
  63. MULTIVITAMIN ^LAPPE^ [Concomitant]
  64. POTASSIUM CHLORIDE [Concomitant]
     Route: 042
  65. VICODIN [Concomitant]
  66. PERIDEX [Concomitant]
  67. AMOXIL ^AYERST LAB^ [Concomitant]
     Dosage: 10 ML, TID
  68. TAXOTERE [Concomitant]
     Indication: PROSTATE CANCER
  69. CELEBREX [Concomitant]
     Dosage: 100 MG, BID
     Route: 048
  70. BICALUTAMIDE [Concomitant]
     Indication: PROSTATE CANCER
  71. FLOMAX [Concomitant]

REACTIONS (74)
  - ALANINE AMINOTRANSFERASE INCREASED [None]
  - ALOPECIA [None]
  - ANXIETY [None]
  - ASTHENIA [None]
  - BACK PAIN [None]
  - BLOOD CHLORIDE DECREASED [None]
  - BLOOD SODIUM DECREASED [None]
  - BONE DEBRIDEMENT [None]
  - BONE DISORDER [None]
  - BONE OPERATION [None]
  - CARDIAC MURMUR [None]
  - CERVICOBRACHIAL SYNDROME [None]
  - CHEST PAIN [None]
  - CHILLS [None]
  - DECREASED INTEREST [None]
  - DENTAL CARIES [None]
  - DEPRESSION [None]
  - DYSURIA [None]
  - ERECTILE DYSFUNCTION [None]
  - FATIGUE [None]
  - GAMMA-GLUTAMYLTRANSFERASE INCREASED [None]
  - GASTROINTESTINAL TUBE INSERTION [None]
  - GINGIVAL ABSCESS [None]
  - GINGIVAL BLEEDING [None]
  - GINGIVAL ERYTHEMA [None]
  - GINGIVAL OEDEMA [None]
  - GINGIVAL PAIN [None]
  - GYNAECOMASTIA [None]
  - HAEMATOCRIT DECREASED [None]
  - HAEMOGLOBIN DECREASED [None]
  - HOT FLUSH [None]
  - HYPOAESTHESIA [None]
  - IMPAIRED HEALING [None]
  - INFECTION [None]
  - INJURY [None]
  - INSOMNIA [None]
  - INTERVERTEBRAL DISC PROTRUSION [None]
  - JAW OPERATION [None]
  - LUNG NEOPLASM [None]
  - LYMPHADENOPATHY MEDIASTINAL [None]
  - MALIGNANT NEOPLASM PROGRESSION [None]
  - METASTASES TO CENTRAL NERVOUS SYSTEM [None]
  - METASTASES TO LIVER [None]
  - MICTURITION URGENCY [None]
  - MUCOSAL INFLAMMATION [None]
  - MUSCULAR WEAKNESS [None]
  - MUSCULOSKELETAL PAIN [None]
  - NASOPHARYNGITIS [None]
  - NAUSEA [None]
  - NECK PAIN [None]
  - NEUROPATHY PERIPHERAL [None]
  - NUTRITIONAL CONDITION ABNORMAL [None]
  - ORAL CAVITY FISTULA [None]
  - OSTEOARTHRITIS [None]
  - OSTEONECROSIS OF JAW [None]
  - OSTEOSARCOMA METASTATIC [None]
  - PAIN [None]
  - PAIN IN JAW [None]
  - PARAESTHESIA [None]
  - POLLAKIURIA [None]
  - PROCTALGIA [None]
  - PROSTATE CANCER RECURRENT [None]
  - PURULENT DISCHARGE [None]
  - PYREXIA [None]
  - RED BLOOD CELL COUNT DECREASED [None]
  - RIB FRACTURE [None]
  - SPINAL COLUMN STENOSIS [None]
  - SPINAL OSTEOARTHRITIS [None]
  - SYNCOPE [None]
  - TOOTH ABSCESS [None]
  - TOOTH EXTRACTION [None]
  - URINARY TRACT INFECTION [None]
  - URINE FLOW DECREASED [None]
  - VOMITING [None]
